FAERS Safety Report 23464040 (Version 1)
Quarter: 2024Q1

REPORT INFORMATION
  Report Type: Spontaneous
  Country: US (occurrence: US)
  Receive Date: 20240201
  Receipt Date: 20240201
  Transmission Date: 20240409
  Serious: Yes (Death, Hospitalization)
  Sender: FDA-Public Use
  Company Number: US-BRAEBURN-US-BRA-24-000071

PATIENT
  Sex: Male

DRUGS (3)
  1. BRIXADI [Suspect]
     Active Substance: BUPRENORPHINE
     Indication: Drug use disorder
     Dosage: 96 MILLIGRAM, MONTHLY
     Route: 065
     Dates: start: 20240102
  2. BRIXADI [Suspect]
     Active Substance: BUPRENORPHINE
     Indication: Substance use disorder
  3. SUBOXONE [Concomitant]
     Active Substance: BUPRENORPHINE HYDROCHLORIDE\NALOXONE HYDROCHLORIDE
     Indication: Product used for unknown indication
     Dosage: 16 MILLIGRAM
     Route: 065

REACTIONS (3)
  - Sepsis [Fatal]
  - Coeliac artery occlusion [Unknown]
  - Intestinal ischaemia [Unknown]

NARRATIVE: CASE EVENT DATE: 20240115
